FAERS Safety Report 9139206 (Version 1)
Quarter: 2013Q1

REPORT INFORMATION
  Report Type: Spontaneous
  Country: ES (occurrence: ES)
  Receive Date: 20130305
  Receipt Date: 20130305
  Transmission Date: 20140127
  Serious: Yes (Life-Threatening)
  Sender: FDA-Public Use
  Company Number: ES-PFIZER INC-2013072859

PATIENT
  Age: 32 Year
  Sex: Female

DRUGS (2)
  1. PREPIDIL [Suspect]
     Indication: LABOUR INDUCTION
     Dosage: UNK
     Route: 005
     Dates: start: 20130112, end: 20130112
  2. OXYTOCIN [Concomitant]
     Dosage: 20 IU, UNK
     Route: 042
     Dates: start: 20130112, end: 20130112

REACTIONS (2)
  - Vaginal haemorrhage [Recovered/Resolved]
  - Disseminated intravascular coagulation [Recovered/Resolved]
